FAERS Safety Report 20003210 (Version 6)
Quarter: 2022Q4

REPORT INFORMATION
  Report Type: Report from Study
  Country: ES (occurrence: ES)
  Receive Date: 20211027
  Receipt Date: 20221111
  Transmission Date: 20230113
  Serious: Yes (Hospitalization, Other)
  Sender: FDA-Public Use
  Company Number: ES-ABBVIE-21P-144-4128543-00

PATIENT
  Age: 80 Year
  Sex: Male

DRUGS (30)
  1. UPADACITINIB [Suspect]
     Active Substance: UPADACITINIB
     Indication: Rheumatoid arthritis
     Route: 048
     Dates: start: 20170904, end: 20180304
  2. LORAZEPAM [Concomitant]
     Active Substance: LORAZEPAM
     Indication: Anxiety
     Route: 048
     Dates: start: 20140521
  3. TAMSULOSIN HYDROCHLORIDE [Concomitant]
     Active Substance: TAMSULOSIN HYDROCHLORIDE
     Indication: Benign prostatic hyperplasia
     Route: 048
     Dates: start: 20110401
  4. HERBALS\SAW PALMETTO [Concomitant]
     Active Substance: HERBALS\SAW PALMETTO
     Indication: Benign prostatic hyperplasia
     Route: 048
     Dates: start: 20131113, end: 20180402
  5. HERBALS\SAW PALMETTO [Concomitant]
     Active Substance: HERBALS\SAW PALMETTO
     Indication: Benign prostatic hyperplasia
     Route: 048
     Dates: start: 20180409
  6. METFORMIN\SITAGLIPTIN [Concomitant]
     Active Substance: METFORMIN\SITAGLIPTIN
     Indication: Diabetes mellitus
     Route: 048
     Dates: start: 20121123, end: 20180318
  7. METFORMIN\SITAGLIPTIN [Concomitant]
     Active Substance: METFORMIN\SITAGLIPTIN
     Indication: Diabetes mellitus
     Route: 048
     Dates: start: 20180320, end: 20180403
  8. METFORMIN\SITAGLIPTIN [Concomitant]
     Active Substance: METFORMIN\SITAGLIPTIN
     Indication: Diabetes mellitus
     Route: 048
     Dates: start: 20180409, end: 20211123
  9. METFORMIN\SITAGLIPTIN [Concomitant]
     Active Substance: METFORMIN\SITAGLIPTIN
     Indication: Diabetes mellitus
     Route: 048
     Dates: start: 20211124
  10. CALCIUM CARBONATE\CHOLECALCIFEROL [Concomitant]
     Active Substance: CALCIUM CARBONATE\CHOLECALCIFEROL
     Indication: Osteoporosis prophylaxis
     Route: 048
     Dates: start: 20170303, end: 20180318
  11. CALCIUM CARBONATE\CHOLECALCIFEROL [Concomitant]
     Active Substance: CALCIUM CARBONATE\CHOLECALCIFEROL
     Indication: Osteoporosis prophylaxis
     Route: 048
     Dates: start: 20180320, end: 20180402
  12. CALCIUM CARBONATE\CHOLECALCIFEROL [Concomitant]
     Active Substance: CALCIUM CARBONATE\CHOLECALCIFEROL
     Indication: Osteoporosis prophylaxis
     Route: 048
     Dates: start: 20180409
  13. LANSOPRAZOLE [Concomitant]
     Active Substance: LANSOPRAZOLE
     Indication: Prophylaxis
     Route: 048
     Dates: start: 20131113, end: 20180318
  14. LANSOPRAZOLE [Concomitant]
     Active Substance: LANSOPRAZOLE
     Indication: Prophylaxis
     Route: 048
     Dates: start: 20180409, end: 20181205
  15. LANSOPRAZOLE [Concomitant]
     Active Substance: LANSOPRAZOLE
     Indication: Prophylaxis
     Route: 048
     Dates: start: 20181212
  16. EBASTINE [Concomitant]
     Active Substance: EBASTINE
     Indication: Rhinitis
     Route: 048
     Dates: start: 20150204, end: 20180402
  17. EBASTINE [Concomitant]
     Active Substance: EBASTINE
     Indication: Rhinitis
     Route: 048
     Dates: start: 20180409, end: 20181205
  18. EBASTINE [Concomitant]
     Active Substance: EBASTINE
     Indication: Rhinitis
     Route: 048
     Dates: start: 20181212
  19. HIDRATHEA [Concomitant]
     Indication: Dry eye
     Route: 047
     Dates: start: 20120127, end: 20180318
  20. HIDRATHEA [Concomitant]
     Indication: Dry eye
     Route: 047
     Dates: start: 20180320, end: 20180402
  21. HIDRATHEA [Concomitant]
     Indication: Dry eye
     Route: 047
     Dates: start: 20180409, end: 20181205
  22. HIDRATHEA [Concomitant]
     Indication: Dry eye
     Route: 047
     Dates: start: 20181212
  23. ASPIRIN [Concomitant]
     Active Substance: ASPIRIN
     Indication: Transient ischaemic attack
     Route: 048
     Dates: start: 20191127
  24. PITAVASTATIN [Concomitant]
     Active Substance: PITAVASTATIN
     Indication: Transient ischaemic attack
     Route: 048
     Dates: start: 20191128
  25. ENALAPRIL [Concomitant]
     Active Substance: ENALAPRIL
     Indication: Hypertension
     Route: 048
     Dates: start: 20191128
  26. FOLIC ACID [Concomitant]
     Active Substance: FOLIC ACID
     Indication: Transient ischaemic attack
     Route: 048
     Dates: start: 20170905, end: 20181022
  27. FOLIC ACID [Concomitant]
     Active Substance: FOLIC ACID
     Indication: Transient ischaemic attack
     Route: 048
     Dates: start: 20191128
  28. PLACEBO [Suspect]
     Active Substance: UNSPECIFIED INGREDIENT
     Indication: Rheumatoid arthritis
     Route: 048
     Dates: start: 20170904, end: 20180226
  29. UPADACITINIB [Suspect]
     Active Substance: UPADACITINIB
     Indication: Rheumatoid arthritis
     Route: 048
     Dates: start: 20180305, end: 20200830
  30. UPADACITINIB [Suspect]
     Active Substance: UPADACITINIB
     Indication: Rheumatoid arthritis
     Route: 048
     Dates: start: 20200831, end: 20211020

REACTIONS (1)
  - Squamous cell carcinoma of the tongue [Not Recovered/Not Resolved]

NARRATIVE: CASE EVENT DATE: 20210903
